FAERS Safety Report 8958134 (Version 1)
Quarter: 2012Q4

REPORT INFORMATION
  Report Type: 
  Country: US (occurrence: US)
  Receive Date: 20121211
  Receipt Date: 20121211
  Transmission Date: 20130627
  Serious: Yes (Other)
  Sender: FDA-Public Use
  Company Number: PHHY2012US112710

PATIENT
  Age: 57 Year
  Sex: Female

DRUGS (2)
  1. BUSPIRONE [Suspect]
  2. TRAMADOL [Suspect]

REACTIONS (3)
  - Unresponsive to stimuli [Unknown]
  - Toxicity to various agents [Unknown]
  - Convulsion [Unknown]
